FAERS Safety Report 8920775 (Version 14)
Quarter: 2016Q4

REPORT INFORMATION
  Report Type: Report from Study
  Country: BR (occurrence: BR)
  Receive Date: 20121121
  Receipt Date: 20161123
  Transmission Date: 20170207
  Serious: Yes (Other)
  Sender: FDA-Public Use
  Company Number: BR-ROCHE-1088842

PATIENT
  Age: 26 Year
  Sex: Female
  Weight: 71.5 kg

DRUGS (21)
  1. RITUXIMAB [Suspect]
     Active Substance: RITUXIMAB
     Route: 058
     Dates: start: 20121107
  2. RITUXIMAB [Suspect]
     Active Substance: RITUXIMAB
     Route: 058
     Dates: start: 20120808
  3. RITUXIMAB [Suspect]
     Active Substance: RITUXIMAB
     Dosage: DATE OF LAST DOSE PRIOR TO SAE: 07/NOV/2013
     Route: 058
     Dates: start: 20131107
  4. PARACETAMOL [Concomitant]
     Active Substance: ACETAMINOPHEN
     Indication: PREMEDICATION
     Route: 065
     Dates: start: 20120711
  5. DIPHENHYDRAMINE. [Concomitant]
     Active Substance: DIPHENHYDRAMINE
     Indication: PREMEDICATION
     Route: 065
     Dates: start: 20120711, end: 20121204
  6. DEXAMETHASONE. [Concomitant]
     Active Substance: DEXAMETHASONE
     Indication: PREMEDICATION
     Route: 065
     Dates: start: 20120725, end: 20120808
  7. DEXAMETHASONE. [Concomitant]
     Active Substance: DEXAMETHASONE
     Route: 065
     Dates: start: 20120903, end: 20121206
  8. DEXAMETHASONE. [Concomitant]
     Active Substance: DEXAMETHASONE
     Route: 065
     Dates: start: 20130718
  9. RITUXIMAB [Suspect]
     Active Substance: RITUXIMAB
     Route: 058
     Dates: start: 20121003
  10. DEXCHLORPHENIRAMINE [Concomitant]
     Active Substance: DEXCHLORPHENIRAMINE
     Indication: PREMEDICATION
     Route: 065
     Dates: start: 20130103
  11. RITUXIMAB [Suspect]
     Active Substance: RITUXIMAB
     Indication: B-CELL LYMPHOMA
     Route: 058
     Dates: start: 20120725
  12. RITUXIMAB [Suspect]
     Active Substance: RITUXIMAB
     Route: 058
     Dates: start: 20130130
  13. DAFLON (DIOSMIN/HESPERIDIN) [Concomitant]
     Active Substance: DIOSMIN\HESPERIDIN
     Route: 065
     Dates: start: 20140128, end: 20140228
  14. KETOROLAC [Concomitant]
     Active Substance: KETOROLAC\KETOROLAC TROMETHAMINE
     Indication: NECK PAIN
     Dosage: TABLET
     Route: 065
     Dates: start: 20140421, end: 20140426
  15. RITUXIMAB [Suspect]
     Active Substance: RITUXIMAB
     Route: 058
     Dates: start: 20121017
  16. CHROMIUM PICOLINATE [Concomitant]
     Active Substance: CHROMIUM PICOLINATE
     Route: 065
     Dates: start: 20140701
  17. RITUXIMAB [Suspect]
     Active Substance: RITUXIMAB
     Indication: B-CELL LYMPHOMA
     Dosage: DATE OF LAST DOSE PRIOR TO SAE: 25/JUL/2012
     Route: 042
     Dates: start: 20120711
  18. RITUXIMAB [Suspect]
     Active Substance: RITUXIMAB
     Route: 058
     Dates: start: 20120903
  19. ONDANSETRON [Concomitant]
     Active Substance: ONDANSETRON
     Indication: PREMEDICATION
     Route: 065
     Dates: start: 20120712, end: 20121206
  20. RITUXIMAB [Suspect]
     Active Substance: RITUXIMAB
     Route: 058
     Dates: start: 20130103
  21. RITUXIMAB [Suspect]
     Active Substance: RITUXIMAB
     Route: 058
     Dates: start: 20121204

REACTIONS (3)
  - Hypersensitivity [Recovered/Resolved]
  - Erythema [Recovered/Resolved]
  - Injection site swelling [Recovered/Resolved]

NARRATIVE: CASE EVENT DATE: 20120711
